FAERS Safety Report 6741864-6 (Version None)
Quarter: 2010Q2

REPORT INFORMATION
  Report Type: 
  Country: None (occurrence: None)
  Receive Date: 20100526
  Receipt Date: 20100517
  Transmission Date: 20101027
  Serious: Yes (Other)
  Sender: FDA-Public Use
  Company Number: A0787081A

PATIENT
  Age: 56 Year
  Sex: Male

DRUGS (1)
  1. AVANDIA [Suspect]
     Dosage: 8MG PER DAY
     Dates: start: 20060301, end: 20070201

REACTIONS (5)
  - AMNESIA [None]
  - ASTHENIA [None]
  - DEPRESSION [None]
  - LOSS OF EMPLOYMENT [None]
  - TRANSIENT ISCHAEMIC ATTACK [None]
